FAERS Safety Report 5732165-3 (Version None)
Quarter: 2008Q2

REPORT INFORMATION
  Report Type: 
  Country: None (occurrence: None)
  Receive Date: 20080508
  Receipt Date: 20080501
  Transmission Date: 20081010
  Serious: Yes (Hospitalization)
  Sender: FDA-Public Use
  Company Number: CA-PFIZER INC-2006129499

PATIENT
  Age: 70 Year
  Sex: Male

DRUGS (7)
  1. NORVASC [Suspect]
     Route: 048
  2. LIPITOR [Suspect]
     Route: 048
  3. ACETYLSALICYLIC ACID SRT [Suspect]
     Route: 048
  4. RAMIPRIL [Suspect]
     Route: 048
     Dates: start: 20060926
  5. CLOPIDOGREL BISULFATE [Suspect]
     Route: 048
  6. METOPROLOL SUCCINATE [Suspect]
     Route: 048
     Dates: start: 20060926
  7. GLYCERYL TRINITRATE [Suspect]
     Dates: start: 20060926

REACTIONS (5)
  - FEELING HOT [None]
  - HYPERSENSITIVITY [None]
  - HYPERTENSION [None]
  - OEDEMA PERIPHERAL [None]
  - PRURITUS [None]
